FAERS Safety Report 23718409 (Version 2)
Quarter: 2024Q2

REPORT INFORMATION
  Report Type: Spontaneous
  Country: ES (occurrence: ES)
  Receive Date: 20240408
  Receipt Date: 20240508
  Transmission Date: 20240716
  Serious: Yes (Hospitalization)
  Sender: FDA-Public Use
  Company Number: ES-GILEAD-2024-0667234

PATIENT
  Sex: Male
  Weight: 88.2 kg

DRUGS (31)
  1. PEMETREXED [Suspect]
     Active Substance: PEMETREXED
     Indication: Non-small cell lung cancer metastatic
     Dosage: 1025 MG
     Route: 042
     Dates: start: 20230526, end: 20230728
  2. PEMETREXED [Suspect]
     Active Substance: PEMETREXED
     Dosage: 980 MG
     Route: 042
     Dates: start: 20230818, end: 20230929
  3. PEMETREXED [Suspect]
     Active Substance: PEMETREXED
     Dosage: 500 MG
     Route: 042
     Dates: start: 20231020, end: 20231020
  4. PEMETREXED [Suspect]
     Active Substance: PEMETREXED
     Dosage: 980 MG
     Route: 042
     Dates: start: 20231110, end: 20240126
  5. PEMETREXED [Suspect]
     Active Substance: PEMETREXED
     Dosage: 960 MG
     Route: 042
     Dates: start: 20240216, end: 20240412
  6. CARBOPLATIN [Suspect]
     Active Substance: CARBOPLATIN
     Indication: Non-small cell lung cancer metastatic
     Dosage: 665 MG
     Route: 042
     Dates: start: 20230526, end: 20230526
  7. CARBOPLATIN [Suspect]
     Active Substance: CARBOPLATIN
     Dosage: 560 MG
     Route: 042
     Dates: start: 20230616, end: 20230728
  8. ZIMBERELIMAB [Suspect]
     Active Substance: ZIMBERELIMAB
     Indication: Non-small cell lung cancer metastatic
     Dosage: 360 MG
     Route: 042
     Dates: start: 20230526, end: 20240315
  9. ZIMBERELIMAB [Suspect]
     Active Substance: ZIMBERELIMAB
     Dosage: 360 MG
     Route: 042
     Dates: start: 20240412, end: 20240412
  10. DOMVANALIMAB [Suspect]
     Active Substance: DOMVANALIMAB
     Indication: Non-small cell lung cancer metastatic
     Dosage: 1200 MG
     Route: 042
     Dates: start: 20230526, end: 20240412
  11. GLUCAGEN [Concomitant]
     Active Substance: GLUCAGON HYDROCHLORIDE
     Indication: Type 2 diabetes mellitus
     Route: 048
  12. INSULIN ASPART [Concomitant]
     Active Substance: INSULIN ASPART
     Indication: Type 2 diabetes mellitus
     Route: 058
  13. LISINOPRIL [Concomitant]
     Active Substance: LISINOPRIL
     Indication: Hypertension
     Route: 048
  14. DEXAMETHASONE [Concomitant]
     Active Substance: DEXAMETHASONE
     Indication: Premedication
     Route: 048
     Dates: start: 20230525
  15. ACETAMINOPHEN [Concomitant]
     Active Substance: ACETAMINOPHEN
     Indication: Prophylaxis
     Route: 048
  16. CORTISONE [Concomitant]
     Active Substance: CORTISONE
     Indication: Prophylaxis
     Route: 048
     Dates: start: 20240113
  17. TAMSULOSIN [Concomitant]
     Active Substance: TAMSULOSIN
     Indication: Benign prostatic hyperplasia
     Route: 048
     Dates: start: 20231113
  18. BISOPROLOL [Concomitant]
     Active Substance: BISOPROLOL\BISOPROLOL FUMARATE
     Indication: Hypertension
     Route: 048
  19. DOXAZOSIN [Concomitant]
     Active Substance: DOXAZOSIN MESYLATE
     Indication: Benign prostatic hyperplasia
     Route: 048
  20. SEMAGLUTIDE [Concomitant]
     Active Substance: SEMAGLUTIDE
     Indication: Type 2 diabetes mellitus
     Route: 048
  21. FOLATE SODIUM [Concomitant]
     Active Substance: FOLATE SODIUM
     Indication: Premedication
     Route: 048
     Dates: start: 20230519
  22. ALLOPURINOL [Concomitant]
     Active Substance: ALLOPURINOL
     Indication: Gout
     Route: 048
  23. FOSTER [Concomitant]
     Active Substance: BECLOMETHASONE\FORMOTEROL
     Indication: Apnoea
     Route: 055
  24. JARDIANCE [Concomitant]
     Active Substance: EMPAGLIFLOZIN
     Indication: Type 2 diabetes mellitus
     Route: 048
  25. SIMVASTATIN [Concomitant]
     Active Substance: SIMVASTATIN
     Indication: Dyslipidaemia
     Route: 048
  26. INSULIN GLARGINE [Concomitant]
     Active Substance: INSULIN GLARGINE
     Indication: Type 2 diabetes mellitus
     Route: 058
     Dates: start: 20230616
  27. METAMIZOLE [Concomitant]
     Active Substance: METAMIZOLE
     Indication: Prophylaxis
     Route: 048
  28. CYANOCOBALAMIN [Concomitant]
     Active Substance: CYANOCOBALAMIN
     Indication: Premedication
     Route: 030
     Dates: start: 20230319
  29. METFORMIN [Concomitant]
     Active Substance: METFORMIN HYDROCHLORIDE
     Indication: Type 2 diabetes mellitus
     Route: 048
  30. FUROSEMIDE [Concomitant]
     Active Substance: FUROSEMIDE
     Indication: Prophylaxis
     Dosage: UNK
     Dates: start: 20240215
  31. HUMAN RED BLOOD CELL [Concomitant]
     Active Substance: HUMAN RED BLOOD CELL
     Indication: Anaemia
     Dosage: UNK
     Dates: start: 20240308, end: 20240308

REACTIONS (2)
  - Pneumonia [Recovered/Resolved]
  - Off label use [Unknown]

NARRATIVE: CASE EVENT DATE: 20240325
